FAERS Safety Report 6580904-4 (Version None)
Quarter: 2010Q1

REPORT INFORMATION
  Report Type: 
  Country: None (occurrence: None)
  Receive Date: 20100215
  Receipt Date: 20091221
  Transmission Date: 20100710
  Serious: No
  Sender: FDA-Public Use
  Company Number: US-BAYER-200938955NA

PATIENT
  Age: 23 Year
  Sex: Female
  Weight: 129 kg

DRUGS (2)
  1. MIRENA [Suspect]
     Indication: CONTRACEPTION
     Dosage: CONTINUOUS DELIVERY
     Route: 015
     Dates: start: 20090507, end: 20091022
  2. MIRENA [Suspect]
     Dosage: CONTINUOUS DELIVERY
     Route: 015
     Dates: start: 20091022

REACTIONS (2)
  - CERVIX DISORDER [None]
  - DEVICE EXPULSION [None]
